FAERS Safety Report 4802521-6 (Version None)
Quarter: 2005Q4

REPORT INFORMATION
  Report Type: 
  Country: None (occurrence: None)
  Receive Date: 20051014
  Receipt Date: 20050314
  Transmission Date: 20060501
  Serious: Yes (Hospitalization)
  Sender: FDA-Public Use
  Company Number: 2004112566

PATIENT
  Age: 47 Year
  Sex: Female

DRUGS (3)
  1. NEURONTIN [Suspect]
     Indication: MIGRAINE PROPHYLAXIS
     Dosage: 1200 MG (600 MG, 2 IN 1 D), ORAL
     Route: 048
     Dates: start: 20040825, end: 20041213
  2. ZOLMITRIPTAN (ZOLMITRIPTAN) [Concomitant]
  3. VALDECOXIB [Concomitant]

REACTIONS (3)
  - DIPLOPIA [None]
  - DYSARTHRIA [None]
  - VERTIGO [None]
